FAERS Safety Report 22630505 (Version 1)
Quarter: 2023Q2

REPORT INFORMATION
  Report Type: Spontaneous
  Country: FR (occurrence: FR)
  Receive Date: 20230622
  Receipt Date: 20230622
  Transmission Date: 20230722
  Serious: Yes (Other)
  Sender: FDA-Public Use
  Company Number: FR-MALLINCKRODT-MNK202302763

PATIENT
  Age: 67 Year
  Sex: Male

DRUGS (3)
  1. UVADEX [Suspect]
     Active Substance: METHOXSALEN
     Indication: Lung transplant rejection
     Dosage: UNKNOWN
     Route: 050
     Dates: start: 2022
  2. UVADEX [Suspect]
     Active Substance: METHOXSALEN
     Dosage: UNKNOWN, LOWER FREQUENCY
     Route: 050
     Dates: start: 2023
  3. LIDOCAINE [Concomitant]
     Active Substance: LIDOCAINE
     Indication: Product used for unknown indication
     Dosage: UNKNOWN

REACTIONS (7)
  - Loss of consciousness [Recovered/Resolved]
  - General physical health deterioration [Not Recovered/Not Resolved]
  - Malaise [Not Recovered/Not Resolved]
  - Hypotension [Not Recovered/Not Resolved]
  - Influenza [Not Recovered/Not Resolved]
  - Poor venous access [Not Recovered/Not Resolved]
  - Product use in unapproved indication [Unknown]

NARRATIVE: CASE EVENT DATE: 20220101
